FAERS Safety Report 4576050-1 (Version None)
Quarter: 2005Q1

REPORT INFORMATION
  Report Type: 
  Country: None (occurrence: None)
  Receive Date: 20050201
  Receipt Date: 20050201
  Transmission Date: 20050727
  Serious: Yes (Other)
  Sender: FDA-Public Use
  Company Number: None

PATIENT
  Age: 44 Year
  Sex: Female
  Weight: 113.3993 kg

DRUGS (2)
  1. PREVACID [Suspect]
     Indication: GASTROOESOPHAGEAL REFLUX DISEASE
     Dosage: PO  (DURATION: ALL LESS THAN 1 MONTH)
     Route: 048
  2. PREVACID [Suspect]
     Indication: PEPTIC ULCER
     Dosage: PO  (DURATION: ALL LESS THAN 1 MONTH)
     Route: 048

REACTIONS (1)
  - TENDONITIS [None]
